FAERS Safety Report 12428088 (Version 1)
Quarter: 2016Q2

REPORT INFORMATION
  Report Type: Spontaneous
  Country: US (occurrence: None)
  Receive Date: 20160601
  Receipt Date: 20160601
  Transmission Date: 20160815
  Serious: No
  Sender: FDA-Public Use
  Company Number: None

PATIENT
  Age: 66 Year
  Sex: Female

DRUGS (1)
  1. RIBAVIRIN TAB 200MG [Suspect]
     Active Substance: RIBAVIRIN
     Indication: CHRONIC HEPATITIS C
     Dosage: 600MG AM AND 400M BID ORAL
     Route: 048

REACTIONS (6)
  - Arthralgia [None]
  - Nausea [None]
  - Hunger [None]
  - Insomnia [None]
  - Abdominal pain upper [None]
  - Pruritus [None]

NARRATIVE: CASE EVENT DATE: 20160422
